FAERS Safety Report 5051932-5 (Version None)
Quarter: 2006Q3

REPORT INFORMATION
  Report Type: 
  Country: None (occurrence: None)
  Receive Date: 20060711
  Receipt Date: 20060620
  Transmission Date: 20061208
  Serious: Yes (Hospitalization)
  Sender: FDA-Public Use
  Company Number: US200606004604

PATIENT
  Age: 20 Year
  Sex: Female

DRUGS (14)
  1. CYMBALTA [Suspect]
     Indication: PAIN
     Dosage: 20 MG,
     Dates: start: 20060607
  2. CLONIDINE [Concomitant]
  3. ERYTHROPOIETIN (ERYTHROPOIETIN) [Concomitant]
  4. LANSOPRAZOLE [Concomitant]
  5. FENTANYL [Concomitant]
  6. LEVOTHYROXINE SODIUM [Concomitant]
  7. OXYCODONE (OXYCODONE) [Concomitant]
  8. OLANZAPINE [Concomitant]
  9. SEVELAMER (SEVELAMER) [Concomitant]
  10. ORTHO EVRA /USA/ (ETHINYLESTRADIOL, NORELGESTROMIN) [Concomitant]
  11. CEFEPIME (CEFEPIME) [Concomitant]
  12. VANCOMYCIN [Concomitant]
  13. SODIUM THIOSULFATE (SODIUM THIOSULFATE) [Concomitant]
  14. ALBUTEROL [Concomitant]

REACTIONS (1)
  - CHOLESTASIS [None]
